FAERS Safety Report 4652182-4 (Version None)
Quarter: 2005Q2

REPORT INFORMATION
  Report Type: 
  Country: None (occurrence: None)
  Receive Date: 20050504
  Receipt Date: 20050221
  Transmission Date: 20051028
  Serious: Yes (Other)
  Sender: FDA-Public Use
  Company Number: PHBS2005IT02557

PATIENT
  Age: 60 Year
  Sex: Female

DRUGS (1)
  1. ZOMETA [Suspect]
     Indication: MULTIPLE MYELOMA
     Dosage: 4 MG, QMO
     Route: 042
     Dates: start: 20041001, end: 20050131

REACTIONS (8)
  - ACUTE SINUSITIS [None]
  - BONE PAIN [None]
  - DENTAL OPERATION [None]
  - FISTULA [None]
  - ORAL MUCOSAL DISORDER [None]
  - OSTEONECROSIS [None]
  - SINUSITIS [None]
  - WOUND DEBRIDEMENT [None]
